FAERS Safety Report 24293451 (Version 1)
Quarter: 2024Q3

REPORT INFORMATION
  Report Type: Spontaneous
  Country: US (occurrence: None)
  Receive Date: 20240906
  Receipt Date: 20240906
  Transmission Date: 20241016
  Serious: No
  Sender: DOMPE FARMACEUTICI
  Company Number: US-FARMAPROD-202308-202401-0167

PATIENT
  Age: 44 Year
  Sex: Female

DRUGS (5)
  1. OXERVATE [Suspect]
     Active Substance: CENEGERMIN-BKBJ
     Indication: Neurotrophic keratopathy
     Route: 047
     Dates: start: 20230504, end: 20230629
  2. OXERVATE [Suspect]
     Active Substance: CENEGERMIN-BKBJ
     Route: 047
     Dates: start: 20231206
  3. REFRESH TEARS [Concomitant]
     Active Substance: CARBOXYMETHYLCELLULOSE SODIUM
  4. ZYLET [Concomitant]
     Active Substance: LOTEPREDNOL ETABONATE\TOBRAMYCIN
     Dosage: 0.3%-0.5%
  5. SODIUM FLUORIDE [Concomitant]
     Active Substance: SODIUM FLUORIDE\SODIUM MONOFLUOROPHOSPHATE
     Dosage: PASTE (ML)

REACTIONS (2)
  - Eye irritation [Unknown]
  - Eye pain [Unknown]

NARRATIVE: CASE EVENT DATE: 20240115
